FAERS Safety Report 5273707-4 (Version None)
Quarter: 2007Q1

REPORT INFORMATION
  Report Type: 
  Country: None (occurrence: None)
  Receive Date: 20070323
  Receipt Date: 20070315
  Transmission Date: 20070707
  Serious: Yes (Hospitalization)
  Sender: FDA-Public Use
  Company Number: HQWYE962116MAR07

PATIENT
  Sex: Female

DRUGS (15)
  1. EUPANTOL [Suspect]
     Indication: INFLUENZA
     Route: 048
     Dates: start: 20070201, end: 20070205
  2. IMODIUM [Suspect]
     Indication: INFLUENZA
     Dosage: 2 DF DAILY
     Route: 048
     Dates: start: 20070201, end: 20070205
  3. ALUMINUM HYDROXIDE AND MAGNESIUM TRISILICATE [Suspect]
     Indication: INFLUENZA
     Dosage: 3 DF DAILY
     Route: 048
     Dates: start: 20070201, end: 20070205
  4. TITANOREINE [Suspect]
     Indication: INFLUENZA
     Dosage: 1 DF DAILY
     Route: 054
     Dates: start: 20070201, end: 20070205
  5. EUPRESSYL [Concomitant]
     Dosage: UNKNOWN
  6. CARMUSTINE [Concomitant]
     Indication: T-CELL LYMPHOMA
     Dosage: DF
     Dates: start: 20040101, end: 20040101
  7. CARMUSTINE [Concomitant]
     Indication: MYCOSIS FUNGOIDES
  8. LERCANIDIPINE HYDROCHLORIDE [Concomitant]
     Dosage: UNKNOWN
  9. DETENSIEL [Concomitant]
     Dosage: UNKNOWN
  10. ALDACTACINE [Concomitant]
     Dosage: UNKNOWN
  11. PAROXETINE HCL [Concomitant]
     Dosage: UNKNOWN
  12. CARYOLYSINE [Concomitant]
     Indication: T-CELL LYMPHOMA
     Dosage: DF
     Dates: start: 20040101, end: 20040101
  13. CARYOLYSINE [Concomitant]
     Indication: MYCOSIS FUNGOIDES
  14. BISOLVON [Suspect]
     Indication: INFLUENZA
     Dosage: 3 DF DAILY
     Route: 048
     Dates: start: 20070201, end: 20070205
  15. IRBESARTAN [Concomitant]
     Dosage: UNKNOWN

REACTIONS (4)
  - ACUTE GENERALISED EXANTHEMATOUS PUSTULOSIS [None]
  - RASH ERYTHEMATOUS [None]
  - RASH PUSTULAR [None]
  - TOXIC SKIN ERUPTION [None]
